FAERS Safety Report 10171142 (Version 1)
Quarter: 2014Q2

REPORT INFORMATION
  Report Type: Spontaneous
  Country: GB (occurrence: None)
  Receive Date: 20140512
  Receipt Date: 20140512
  Transmission Date: 20141212
  Serious: Yes (Other)
  Sender: FDA-Public Use
  Company Number: GB-ALKEM-000581

PATIENT
  Age: 35 Year
  Sex: Female

DRUGS (1)
  1. AMLODIPINE [Suspect]
     Route: 061

REACTIONS (6)
  - Mydriasis [None]
  - Vision blurred [None]
  - Accommodation disorder [None]
  - Visual acuity reduced [None]
  - Pupil fixed [None]
  - Accidental exposure to product [None]
